FAERS Safety Report 13232043 (Version 1)
Quarter: 2017Q1

REPORT INFORMATION
  Report Type: Spontaneous
  Country: US (occurrence: US)
  Receive Date: 20170214
  Receipt Date: 20170214
  Transmission Date: 20170428
  Serious: Yes (Hospitalization)
  Sender: FDA-Public Use
  Company Number: US-UCBSA-2016037949

PATIENT
  Age: 53 Year
  Sex: Female
  Weight: 63.5 kg

DRUGS (13)
  1. PERCOCET [Concomitant]
     Active Substance: ACETAMINOPHEN\OXYCODONE HYDROCHLORIDE
     Indication: LOCALISED INFECTION
     Dosage: UNK, AS NEEDED (PRN)
  2. TYLENOL [Concomitant]
     Active Substance: ACETAMINOPHEN
     Indication: LOCALISED INFECTION
     Dosage: UNK, AS NEEDED (PRN)
  3. NEUPRO [Suspect]
     Active Substance: ROTIGOTINE
     Indication: RESTLESS LEGS SYNDROME
     Dosage: 1 MG, ONCE DAILY (QD)
     Route: 062
     Dates: start: 201603, end: 2016
  4. NEUPRO [Suspect]
     Active Substance: ROTIGOTINE
     Dosage: 3 MG PATCH DAILY (3 PCS OF 1 MG PATCHES)
     Route: 062
     Dates: start: 2016, end: 2016
  5. CLONIDINE. [Concomitant]
     Active Substance: CLONIDINE
     Indication: FEELING OF RELAXATION
     Dosage: 1 MG, ONCE DAILY (QD) AT NIGHT
  6. NEUPRO [Suspect]
     Active Substance: ROTIGOTINE
     Dosage: 2 MG PATCH DAILY
     Route: 062
     Dates: start: 2016, end: 2016
  7. MULTIVITAMINS [Concomitant]
     Active Substance: VITAMINS
     Indication: SUPPLEMENTATION THERAPY
     Dosage: UNK
  8. NEUPRO [Suspect]
     Active Substance: ROTIGOTINE
     Dosage: 3 MG, ONCE DAILY (QD)
     Route: 062
     Dates: start: 2016
  9. WELLBUTRIN [Concomitant]
     Active Substance: BUPROPION HYDROCHLORIDE
     Indication: PRODUCT USED FOR UNKNOWN INDICATION
     Dosage: UNKNOWN DOSE
  10. PROZAC [Concomitant]
     Active Substance: FLUOXETINE HYDROCHLORIDE
     Indication: DEPRESSION
     Dosage: 20 MG, 3X/DAY (TID)
  11. CLONAZEPAM. [Concomitant]
     Active Substance: CLONAZEPAM
     Indication: PRODUCT USED FOR UNKNOWN INDICATION
     Dosage: 2 MG, ONCE DAILY (QD), AT NIGHT
  12. IBUPROFEN. [Concomitant]
     Active Substance: IBUPROFEN
     Indication: LOCALISED INFECTION
     Dosage: UNK, AS NEEDED (PRN)
  13. XANAX [Concomitant]
     Active Substance: ALPRAZOLAM
     Indication: PRODUCT USED FOR UNKNOWN INDICATION
     Dosage: UNK, AS NEEDED (PRN)

REACTIONS (7)
  - Application site erythema [Not Recovered/Not Resolved]
  - Localised infection [Unknown]
  - Ligament rupture [Recovering/Resolving]
  - Muscle spasms [Unknown]
  - Blister [Not Recovered/Not Resolved]
  - Application site pruritus [Not Recovered/Not Resolved]
  - Product adhesion issue [Unknown]

NARRATIVE: CASE EVENT DATE: 2016
